FAERS Safety Report 5130694-7 (Version None)
Quarter: 2006Q3

REPORT INFORMATION
  Report Type: 
  Country: None (occurrence: None)
  Receive Date: 20060829
  Receipt Date: 20060720
  Transmission Date: 20061208
  Serious: No
  Sender: FDA-Public Use
  Company Number: PHEH2006US09306

PATIENT
  Age: 78 Year
  Sex: Female

DRUGS (3)
  1. EXJADE [Suspect]
     Indication: IRON OVERLOAD
     Dosage: QD, ORAL
     Route: 048
     Dates: start: 20060713
  2. TAMOXIFEN CITRATE [Concomitant]
  3. FOSAMAX [Concomitant]

REACTIONS (3)
  - DIARRHOEA [None]
  - PRURITUS GENERALISED [None]
  - SKIN NODULE [None]
